FAERS Safety Report 9180622 (Version 1)
Quarter: 2013Q1

REPORT INFORMATION
  Report Type: Spontaneous
  Country: GB (occurrence: None)
  Receive Date: 20130320
  Receipt Date: 20130320
  Transmission Date: 20140127
  Serious: Yes (Other)
  Sender: FDA-Public Use
  Company Number: 2013-04926

PATIENT
  Sex: 0

DRUGS (1)
  1. PROPRANOLOL HYDROCHLORIDE (AELLC) (PROPANOLOL HYDROCHLORIDE [Suspect]
     Indication: HEADACHE

REACTIONS (4)
  - Cognitive disorder [None]
  - Feeling abnormal [None]
  - Headache [None]
  - Reaction to drug excipients [None]
